FAERS Safety Report 21635286 (Version 2)
Quarter: 2022Q4

REPORT INFORMATION
  Report Type: Report from Study
  Country: BR (occurrence: None)
  Receive Date: 20221123
  Receipt Date: 20221207
  Transmission Date: 20230113
  Serious: Yes (Hospitalization)
  Sender: FDA-Public Use
  Company Number: BR-Eisai Medical Research-EC-2022-128720

PATIENT
  Age: 63 Year
  Sex: Male
  Weight: 96.2 kg

DRUGS (13)
  1. LENVATINIB [Suspect]
     Active Substance: LENVATINIB
     Indication: Clear cell renal cell carcinoma
     Dosage: STARTING DOSE AT 20 MG, FLUCTUATED DOSE
     Route: 048
     Dates: start: 20220512, end: 20221116
  2. LENVATINIB [Suspect]
     Active Substance: LENVATINIB
     Route: 048
     Dates: start: 20221201
  3. PEMBROLIZUMAB [Suspect]
     Active Substance: PEMBROLIZUMAB
     Indication: Clear cell renal cell carcinoma
     Dosage: MK 1308 25MG + PEMBROLIZUMAB (MK-3475) 400MG
     Route: 041
     Dates: start: 20220512, end: 20221025
  4. METFORMIN [Concomitant]
     Active Substance: METFORMIN HYDROCHLORIDE
     Dates: start: 200201
  5. HYDROCHLOROTHIAZIDE [Concomitant]
     Active Substance: HYDROCHLOROTHIAZIDE
     Dates: start: 20210429
  6. DIPYRONE [Concomitant]
     Active Substance: DIPYRONE
     Dates: start: 20210521
  7. OMEPRAZOLE [Concomitant]
     Active Substance: OMEPRAZOLE
     Dates: start: 20210706
  8. GLICLAZIDE [Concomitant]
     Active Substance: GLICLAZIDE
     Dates: start: 20220429
  9. ENALAPRIL [Concomitant]
     Active Substance: ENALAPRIL
     Dates: start: 20220429
  10. AMLODIPINE [Concomitant]
     Active Substance: AMLODIPINE BESYLATE
     Dates: start: 20220519
  11. FORMOTEROL FUMARATE [Concomitant]
     Active Substance: FORMOTEROL FUMARATE
     Dates: start: 20220524
  12. ATENOLOL [Concomitant]
     Active Substance: ATENOLOL
     Dates: start: 20220804
  13. QUAVONLIMAB [Suspect]
     Active Substance: QUAVONLIMAB

REACTIONS (1)
  - Faeces discoloured [Recovered/Resolved]

NARRATIVE: CASE EVENT DATE: 20221115
